FAERS Safety Report 4416041-4 (Version None)
Quarter: 2004Q3

REPORT INFORMATION
  Report Type: 
  Country: None (occurrence: None)
  Receive Date: 20040804
  Receipt Date: 20040804
  Transmission Date: 20050211
  Serious: Yes (Hospitalization)
  Sender: FDA-Public Use
  Company Number: None

PATIENT
  Age: 56 Year
  Sex: Female
  Weight: 114.3 kg

DRUGS (11)
  1. CUBICIN [Suspect]
     Indication: OSTEOMYELITIS
     Dosage: 880 IV DAILY
     Route: 042
     Dates: start: 20040528, end: 20040605
  2. FERROUS SULFATE TAB [Concomitant]
  3. MULTIPLE VITAMIN [Concomitant]
  4. GLARGINE INSULIN [Concomitant]
  5. METFORMIN HCL [Concomitant]
  6. FLUROSEMIDE [Concomitant]
  7. LISINOPRIL [Concomitant]
  8. METROPROLOL [Concomitant]
  9. VICODIN [Concomitant]
  10. KCL TAB [Concomitant]
  11. CITALOPRAM [Concomitant]

REACTIONS (5)
  - DIARRHOEA [None]
  - LIVER FUNCTION TEST ABNORMAL [None]
  - NAUSEA [None]
  - RHABDOMYOLYSIS [None]
  - VOMITING [None]
